FAERS Safety Report 11574725 (Version 7)
Quarter: 2020Q3

REPORT INFORMATION
  Report Type: Spontaneous
  Country: US (occurrence: US)
  Receive Date: 20150930
  Receipt Date: 20200929
  Transmission Date: 20201102
  Serious: No
  Sender: FDA-Public Use
  Company Number: US-PFIZER INC-2015324148

PATIENT
  Age: 48 Year
  Sex: Male
  Weight: 122.4 kg

DRUGS (18)
  1. LOVASTATIN. [Concomitant]
     Active Substance: LOVASTATIN
     Dosage: 40 MG, 1X/DAY
  2. LISINOPRIL. [Concomitant]
     Active Substance: LISINOPRIL
     Indication: BLOOD PRESSURE INCREASED
     Dosage: 5 MG, 1X/DAY
     Dates: start: 2015
  3. CARAFATE [Concomitant]
     Active Substance: SUCRALFATE
     Indication: GASTROOESOPHAGEAL REFLUX DISEASE
     Dosage: 1 MG, 4X/DAY (DAILY BEFORE MEALS AND NIGHTLY)
     Route: 048
     Dates: start: 201511
  4. DEXILANT [Concomitant]
     Active Substance: DEXLANSOPRAZOLE
     Dosage: 60 MG, DAILY
  5. HYDROCODONE BITARTRATE AND ACETAMINOPHEN [Concomitant]
     Active Substance: ACETAMINOPHEN\HYDROCODONE BITARTRATE
     Dosage: U7.5?325 MG TABLET, AS NEEDED
  6. VERAMYST [Concomitant]
     Active Substance: FLUTICASONE FUROATE
     Dosage: 1 PUFF, DAILY
     Route: 055
  7. LISINOPRIL. [Concomitant]
     Active Substance: LISINOPRIL
     Indication: PROPHYLAXIS
  8. METFORMIN HCL [Concomitant]
     Active Substance: METFORMIN HYDROCHLORIDE
     Indication: DIABETES MELLITUS
     Dosage: 1000 MG, 2X/DAY
     Dates: start: 2001
  9. CYCLOBENZAPRINE. [Concomitant]
     Active Substance: CYCLOBENZAPRINE
     Indication: BACK DISORDER
     Dosage: 10 MG, AS NEEDED (THREE TIMES A DAY OR AS NEEDED)
     Dates: start: 201406
  10. PROAIR HFA [Concomitant]
     Active Substance: ALBUTEROL SULFATE
     Dosage: 108 (90 BASE) MCG/ACT AEROSOL SOLUTION AERS, AS NEEDED
  11. SYMBICORT [Concomitant]
     Active Substance: BUDESONIDE\FORMOTEROL FUMARATE DIHYDRATE
     Dosage: 1 PUFF, TWICE A DAY
  12. REVATIO [Suspect]
     Active Substance: SILDENAFIL CITRATE
     Indication: PULMONARY HYPERTENSION
     Dosage: 20 MG, 3X/DAY
     Route: 048
     Dates: start: 2013
  13. REVATIO [Suspect]
     Active Substance: SILDENAFIL CITRATE
     Indication: SLEEP APNOEA SYNDROME
  14. TAMSULOSIN HCL [Concomitant]
     Active Substance: TAMSULOSIN HYDROCHLORIDE
     Indication: PROSTATIC DISORDER
     Dosage: 0.4 MG, 1X/DAY [ONE BEFORE BED]
     Dates: start: 2015
  15. COREG [Concomitant]
     Active Substance: CARVEDILOL
     Indication: HEART RATE IRREGULAR
     Dosage: 6.25 MG, 2X/DAY
     Dates: start: 2014
  16. CLONAZEPAM. [Concomitant]
     Active Substance: CLONAZEPAM
     Indication: ANGINA PECTORIS
     Dosage: 1 MG, AS NEEDED (THREE TIMES A DAY OR AS NEEDED)
     Dates: start: 2013
  17. LIPITOR [Concomitant]
     Active Substance: ATORVASTATIN CALCIUM
     Indication: BLOOD CHOLESTEROL
     Dosage: UNK, 2X/DAY
     Dates: start: 2000
  18. CARVEDILOL. [Concomitant]
     Active Substance: CARVEDILOL
     Dosage: 25 MG TABLET, TWICE A DAY

REACTIONS (7)
  - Asthenia [Unknown]
  - Headache [Unknown]
  - Dyspnoea [Unknown]
  - Chest pain [Unknown]
  - Dysphonia [Unknown]
  - Malaise [Not Recovered/Not Resolved]
  - Product dose omission issue [Unknown]

NARRATIVE: CASE EVENT DATE: 20130305
